FAERS Safety Report 23336904 (Version 2)
Quarter: 2024Q1

REPORT INFORMATION
  Report Type: Other
  Country: US (occurrence: None)
  Receive Date: 20231226
  Receipt Date: 20240122
  Transmission Date: 20240410
  Serious: Yes (Hospitalization)
  Sender: FDA-Public Use
  Company Number: US-ROCHE-3479640

PATIENT
  Age: 35 Year
  Sex: Female

DRUGS (1)
  1. PULMOZYME [Suspect]
     Active Substance: DORNASE ALFA
     Indication: Cystic fibrosis
     Dosage: NEBULIZE THE CONTENTS OF 1 VIAL TWICE A DAY
     Route: 055

REACTIONS (1)
  - COVID-19 [Unknown]
